FAERS Safety Report 4635652-4 (Version None)
Quarter: 2005Q2

REPORT INFORMATION
  Report Type: 
  Country: None (occurrence: None)
  Receive Date: 20050413
  Receipt Date: 20050407
  Transmission Date: 20051028
  Serious: Yes (Disabling)
  Sender: FDA-Public Use
  Company Number: 2005055718

PATIENT
  Age: 62 Year
  Sex: Male

DRUGS (3)
  1. AMLODIPINE [Suspect]
     Indication: HYPERTENSION
     Dosage: 5 MG (5 MG, QD), ORAL
     Route: 048
     Dates: start: 20050117, end: 20050131
  2. ASPIRIN [Concomitant]
  3. LAFUTIDINE (LAFUTIDINE) [Concomitant]

REACTIONS (2)
  - ATRIOVENTRICULAR BLOCK COMPLETE [None]
  - SINUS BRADYCARDIA [None]
